FAERS Safety Report 17983819 (Version 1)
Quarter: 2020Q3

REPORT INFORMATION
  Report Type: Spontaneous
  Country: US (occurrence: US)
  Receive Date: 20200705
  Receipt Date: 20200705
  Transmission Date: 20201103
  Serious: Yes (Other)
  Sender: FDA-Public Use
  Company Number: None

PATIENT
  Age: 45 Year
  Sex: Female
  Weight: 63.9 kg

DRUGS (5)
  1. NAC SUPPLEMENTS [Concomitant]
  2. VITAMIN C [Concomitant]
     Active Substance: ASCORBIC ACID
  3. LEVOFLOXACIN. [Suspect]
     Active Substance: LEVOFLOXACIN
     Indication: INFECTION PROPHYLAXIS
     Dosage: ?          QUANTITY:1 TABLET(S);?
     Route: 048
  4. ZINC. [Concomitant]
     Active Substance: ZINC
  5. PREDNISONE. [Suspect]
     Active Substance: PREDNISONE

REACTIONS (11)
  - Burning sensation [None]
  - Asthenia [None]
  - Headache [None]
  - Tendon pain [None]
  - Arthralgia [None]
  - Pain [None]
  - Hypoaesthesia [None]
  - Paraesthesia [None]
  - Vertigo [None]
  - Dizziness [None]
  - Myalgia [None]

NARRATIVE: CASE EVENT DATE: 20200611
